FAERS Safety Report 7444804-X (Version None)
Quarter: 2011Q2

REPORT INFORMATION
  Report Type: 
  Country: None (occurrence: None)
  Receive Date: 20110426
  Receipt Date: 20110426
  Transmission Date: 20111010
  Serious: Yes (Other)
  Sender: FDA-Public Use
  Company Number: None

PATIENT
  Age: 20 Year
  Sex: Female
  Weight: 54.4316 kg

DRUGS (1)
  1. LARIAM [Suspect]
     Indication: MALARIA PROPHYLAXIS
     Dosage: 1 TABLET WEEKLY PO
     Route: 048
     Dates: start: 20100823, end: 20101015

REACTIONS (9)
  - PANIC ATTACK [None]
  - VERTIGO [None]
  - COGNITIVE DISORDER [None]
  - FATIGUE [None]
  - ANXIETY [None]
  - DEPRESSION [None]
  - DISTURBANCE IN ATTENTION [None]
  - NEUROTOXICITY [None]
  - BALANCE DISORDER [None]
